FAERS Safety Report 6868402-1 (Version None)
Quarter: 2010Q3

REPORT INFORMATION
  Report Type: 
  Country: None (occurrence: None)
  Receive Date: 20100722
  Receipt Date: 20080527
  Transmission Date: 20110219
  Serious: No
  Sender: FDA-Public Use
  Company Number: US-PFIZER INC-2008045935

PATIENT
  Sex: Female
  Weight: 68.2 kg

DRUGS (8)
  1. CHANTIX [Suspect]
     Indication: SMOKING CESSATION THERAPY
     Dates: start: 20080401
  2. ZYPREXA [Concomitant]
  3. ABILIFY [Concomitant]
  4. KLONOPIN [Concomitant]
  5. ZOLOFT [Concomitant]
  6. ZETIA [Concomitant]
  7. ACETYLSALICYLIC ACID [Concomitant]
  8. CYANOCOBALAMIN [Concomitant]

REACTIONS (2)
  - DRUG INEFFECTIVE [None]
  - SOMNOLENCE [None]
